FAERS Safety Report 5049436-9 (Version None)
Quarter: 2006Q3

REPORT INFORMATION
  Report Type: 
  Country: None (occurrence: None)
  Receive Date: 20060712
  Receipt Date: 20060703
  Transmission Date: 20061208
  Serious: Yes (Life-Threatening)
  Sender: FDA-Public Use
  Company Number: FI-ROCHE-453793

PATIENT
  Age: 26 Year
  Sex: Female

DRUGS (2)
  1. ROACCUTAN [Suspect]
     Indication: ACNE
     Route: 048
     Dates: start: 20050515, end: 20050915
  2. ROACCUTAN [Suspect]
     Route: 048
     Dates: start: 20020615, end: 20020615

REACTIONS (1)
  - HODGKIN'S DISEASE [None]
